FAERS Safety Report 8411784 (Version 6)
Quarter: 2012Q4

REPORT INFORMATION
  Report Type: 
  Country: US (occurrence: US)
  Receive Date: 20120217
  Receipt Date: 20121022
  Transmission Date: 20130627
  Serious: Yes (Hospitalization, Other)
  Sender: FDA-Public Use
  Company Number: US-009507513-1202USA02451

PATIENT

DRUGS (1)
  1. FOSAMAX [Suspect]
     Dosage: 70 mg, qw
     Route: 048
     Dates: start: 19951003

REACTIONS (12)
  - Femur fracture [Unknown]
  - Electrocardiogram abnormal [Unknown]
  - Fall [Unknown]
  - Postoperative fever [Unknown]
  - Anaemia postoperative [Unknown]
  - Hypertension [Unknown]
  - Low turnover osteopathy [Unknown]
  - Hyperlipidaemia [Unknown]
  - Osteoporosis [Unknown]
  - Cyst [Unknown]
  - Wound [Unknown]
  - Limb asymmetry [Unknown]
